FAERS Safety Report 9511829 (Version 1)
Quarter: 2013Q3

REPORT INFORMATION
  Report Type: Spontaneous
  Country: US (occurrence: US)
  Receive Date: 20130910
  Receipt Date: 20130910
  Transmission Date: 20140515
  Serious: Yes (Hospitalization, Other)
  Sender: FDA-Public Use
  Company Number: US-SANOFI-AVENTIS-2013SA089342

PATIENT
  Age: 44 Year
  Sex: Female

DRUGS (3)
  1. LANTUS SOLOSTAR [Suspect]
     Indication: TYPE 1 DIABETES MELLITUS
     Dosage: 7AM/8 PM
     Route: 058
  2. NOVOLOG [Suspect]
     Route: 065
  3. SOLOSTAR [Concomitant]
     Indication: TYPE 1 DIABETES MELLITUS

REACTIONS (3)
  - Epilepsy [Recovered/Resolved]
  - Blood glucose abnormal [Unknown]
  - Incorrect product storage [Unknown]
